FAERS Safety Report 12080560 (Version 1)
Quarter: 2016Q1

REPORT INFORMATION
  Report Type: Spontaneous
  Country: US (occurrence: None)
  Receive Date: 20160212
  Receipt Date: 20160212
  Transmission Date: 20160526
  Serious: No
  Sender: FDA-Public Use
  Company Number: None

PATIENT
  Age: 25 Year
  Sex: Female
  Weight: 95.26 kg

DRUGS (1)
  1. NEXPLANON [Suspect]
     Active Substance: ETONOGESTREL
     Indication: CONTRACEPTION
     Dosage: IMPLANT, ITS AN IMPLANT, INNER SIDE OF MY LEFT ARM.

REACTIONS (4)
  - Malaise [None]
  - Drug ineffective [None]
  - Haematemesis [None]
  - Abdominal pain upper [None]

NARRATIVE: CASE EVENT DATE: 20160120
